FAERS Safety Report 12287881 (Version 2)
Quarter: 2016Q2

REPORT INFORMATION
  Report Type: Spontaneous
  Country: US (occurrence: US)
  Receive Date: 20160420
  Receipt Date: 20160425
  Transmission Date: 20160815
  Serious: Yes (Other)
  Sender: FDA-Public Use
  Company Number: US-MDT-ADR-2016-00184

PATIENT
  Age: 47 Year
  Sex: Female

DRUGS (2)
  1. COMPOUNDED BACLOFEN [Suspect]
     Active Substance: BACLOFEN
     Dosage: 113MCG/DAY
     Route: 037
  2. DILAUDID [Suspect]
     Active Substance: HYDROMORPHONE HYDROCHLORIDE
     Dosage: 1.3MG/DAY
     Route: 037

REACTIONS (5)
  - Drug withdrawal syndrome [Recovered/Resolved]
  - Malaise [Recovered/Resolved]
  - Musculoskeletal stiffness [Recovered/Resolved]
  - White blood cell count increased [Recovered/Resolved]
  - Infection [Recovered/Resolved]
